FAERS Safety Report 9147659 (Version 5)
Quarter: 2013Q2

REPORT INFORMATION
  Report Type: Spontaneous
  Country: US (occurrence: US)
  Receive Date: 20130307
  Receipt Date: 20130520
  Transmission Date: 20140414
  Serious: Yes (Death, Hospitalization, Disabling, Other)
  Sender: FDA-Public Use
  Company Number: US-009507513-1111USA02196

PATIENT
  Sex: Female

DRUGS (6)
  1. FOSAMAX [Suspect]
     Indication: OSTEOPOROSIS
     Dosage: 70 MG, QW
     Route: 048
     Dates: start: 20050419, end: 20111119
  2. VITAMINS (UNSPECIFIED) [Concomitant]
     Dosage: 1 DF, QD
     Route: 048
  3. CALCIUM (UNSPECIFIED) (+) VITAMIN D (UNSPECIFIED) [Concomitant]
  4. ESTROVEN (NEW FORMULA) [Concomitant]
  5. OS-CAL + D [Concomitant]
     Dosage: 1 DF, TID
     Route: 048
  6. COLACE [Concomitant]
     Dosage: 100 MG, BID
     Route: 048

REACTIONS (8)
  - Femoral neck fracture [Unknown]
  - Closed fracture manipulation [Unknown]
  - Acute myeloid leukaemia [Fatal]
  - Bone marrow transplant [Unknown]
  - Graft versus host disease [Fatal]
  - Impaired healing [Unknown]
  - Anaemia [Unknown]
  - Musculoskeletal pain [Unknown]
